FAERS Safety Report 18433909 (Version 1)
Quarter: 2020Q4

REPORT INFORMATION
  Report Type: Spontaneous
  Country: US (occurrence: US)
  Receive Date: 20201027
  Receipt Date: 20201027
  Transmission Date: 20210114
  Serious: Yes (Hospitalization)
  Sender: FDA-Public Use
  Company Number: US-FRESENIUS KABI-FK202011340

PATIENT
  Age: 26 Year
  Sex: Male

DRUGS (1)
  1. FENTANYL (MANUFACTURER UNKNOWN) [Suspect]
     Active Substance: FENTANYL
     Indication: PRODUCT USED FOR UNKNOWN INDICATION
     Route: 045

REACTIONS (5)
  - Respiratory failure [Recovered/Resolved]
  - Pneumonitis chemical [Recovered/Resolved]
  - Drug abuse [Recovered/Resolved]
  - Meningococcal bacteraemia [Recovered/Resolved]
  - Overdose [Recovered/Resolved]
